FAERS Safety Report 21843217 (Version 1)
Quarter: 2023Q1

REPORT INFORMATION
  Report Type: Spontaneous
  Country: IT (occurrence: IT)
  Receive Date: 20230110
  Receipt Date: 20230110
  Transmission Date: 20230417
  Serious: Yes (Other)
  Sender: FDA-Public Use
  Company Number: None

PATIENT
  Age: 7 Year
  Sex: Female
  Weight: 23 kg

DRUGS (1)
  1. ONDANSETRON [Suspect]
     Active Substance: ONDANSETRON
     Indication: Nausea
     Dosage: UNK, ORODISPERSIBLE FILM
     Route: 048

REACTIONS (5)
  - Hemiparesis [Recovering/Resolving]
  - Constipation [Not Recovered/Not Resolved]
  - Tongue coated [Recovering/Resolving]
  - Asthenia [Recovering/Resolving]
  - Pharyngeal erythema [Recovering/Resolving]

NARRATIVE: CASE EVENT DATE: 20221128
